FAERS Safety Report 5280214-1 (Version None)
Quarter: 2007Q1

REPORT INFORMATION
  Report Type: 
  Country: None (occurrence: None)
  Receive Date: 20070329
  Receipt Date: 20070321
  Transmission Date: 20070707
  Serious: Yes (Hospitalization)
  Sender: FDA-Public Use
  Company Number: DE-ROCHE-488881

PATIENT
  Age: 68 Year
  Sex: Female
  Weight: 54.4 kg

DRUGS (10)
  1. VALGANCICLOVIR HCL [Suspect]
     Dosage: DATE OF LAST DOSE PRIOR TO SAE WAS REPORTED AS 01 JAN 2007. FREQUENCY REPORTED AS EVERY OTHER DAY.
     Route: 048
     Dates: start: 20061019
  2. PROGRAF [Concomitant]
  3. MYCOPHENOLATE MOFETIL [Concomitant]
  4. URBASON [Concomitant]
  5. METOPROLOL SUCCINATE [Concomitant]
  6. VESDIL [Concomitant]
  7. ACC [Concomitant]
  8. NEORECORMON [Concomitant]
  9. DECOSTRIOL [Concomitant]
  10. SIMVAHEXAL [Concomitant]

REACTIONS (1)
  - GASTROINTESTINAL INFECTION [None]
